FAERS Safety Report 6972508-6 (Version None)
Quarter: 2010Q3

REPORT INFORMATION
  Report Type: 
  Country: None (occurrence: None)
  Receive Date: 20100909
  Receipt Date: 20100827
  Transmission Date: 20110219
  Serious: No
  Sender: FDA-Public Use
  Company Number: US-B.I. PHARMACEUTICALS,INC./RIDGEFIELD-2010-BP-08808BP

PATIENT
  Age: 84 Year
  Sex: Female
  Weight: 54.43 kg

DRUGS (7)
  1. SPIRIVA [Suspect]
     Indication: EMPHYSEMA
     Dosage: 18 MCG
     Route: 055
     Dates: start: 20100701, end: 20100701
  2. SPIRIVA [Suspect]
     Indication: CHRONIC OBSTRUCTIVE PULMONARY DISEASE
  3. VENTOLIN [Concomitant]
     Dosage: 1 PUF
  4. METOPROLOL XL [Concomitant]
  5. ASMANEX TWISTHALER [Concomitant]
  6. POTASSIUM CHLORIDE [Concomitant]
  7. LANSOPRAZOLE [Concomitant]
     Dosage: 30 MG

REACTIONS (1)
  - FATIGUE [None]
